FAERS Safety Report 23936282 (Version 1)
Quarter: 2024Q2

REPORT INFORMATION
  Report Type: Spontaneous
  Country: CN (occurrence: None)
  Receive Date: 20240604
  Receipt Date: 20240604
  Transmission Date: 20240716
  Serious: Yes (Other)
  Sender: FDA-Public Use
  Company Number: CN-ROCHE-3575382

PATIENT
  Sex: Female
  Weight: 57 kg

DRUGS (8)
  1. HERCEPTIN [Suspect]
     Active Substance: TRASTUZUMAB
     Indication: Breast cancer
     Dosage: EC REGIMEN FOR CYCLES 6 OF CHEMOTHERAPY
     Route: 041
     Dates: start: 20240518, end: 20240518
  2. HERCEPTIN [Suspect]
     Active Substance: TRASTUZUMAB
     Dosage: EC REGIMEN FOR CYCLES 1-5 OF CHEMOTHERAPY
     Route: 041
  3. PACLITAXEL [Suspect]
     Active Substance: PACLITAXEL
     Indication: Breast cancer
     Dosage: EC REGIMEN FOR CYCLES 1-5 OF CHEMOTHERAPY
     Route: 041
  4. PACLITAXEL [Suspect]
     Active Substance: PACLITAXEL
     Dosage: EC REGIMEN FOR CYCLES 6 OF CHEMOTHERAPY
     Route: 041
     Dates: start: 20240518, end: 20240518
  5. DEXAMETHASONE SODIUM PHOSPHATE [Concomitant]
     Active Substance: DEXAMETHASONE PHOSPHATE\DEXAMETHASONE SODIUM PHOSPHATE
     Indication: Breast cancer
     Route: 041
     Dates: start: 20240508, end: 20240508
  6. ONDANSETRON HYDROCHLORIDE [Concomitant]
     Active Substance: ONDANSETRON HYDROCHLORIDE
     Indication: Breast cancer
     Route: 041
     Dates: start: 20240518, end: 20240518
  7. DIPHENHYDRAMINE HYDROCHLORIDE [Concomitant]
     Active Substance: DIPHENHYDRAMINE HYDROCHLORIDE
     Indication: Breast cancer
     Route: 030
     Dates: start: 20240518, end: 20240518
  8. CIMETIDINE [Concomitant]
     Active Substance: CIMETIDINE
     Indication: Breast cancer
     Route: 041
     Dates: start: 20240518, end: 20240518

REACTIONS (1)
  - Myelosuppression [Recovering/Resolving]
